FAERS Safety Report 10732274 (Version 1)
Quarter: 2015Q1

REPORT INFORMATION
  Report Type: Spontaneous
  Country: US (occurrence: None)
  Receive Date: 20150120
  Receipt Date: 20150120
  Transmission Date: 20150721
  Serious: Yes (Death, Life-Threatening)
  Sender: FDA-Public Use
  Company Number: FK201500175

PATIENT
  Age: 85 Year
  Sex: Male

DRUGS (1)
  1. HEPARIN (MANUFACTURER UNKNOWN) (HEPARIN) (HEPARIN) [Suspect]
     Active Substance: HEPARIN SODIUM
     Indication: PRODUCT USED FOR UNKNOWN INDICATION

REACTIONS (7)
  - Cardiac tamponade [None]
  - Aneurysm ruptured [None]
  - Blood pressure decreased [None]
  - Arteriosclerosis [None]
  - Pericardial effusion [None]
  - Cardiac arrest [None]
  - Hypertension [None]
